FAERS Safety Report 23019428 (Version 4)
Quarter: 2025Q2

REPORT INFORMATION
  Report Type: Report from Study
  Country: CA (occurrence: CA)
  Receive Date: 20231003
  Receipt Date: 20250609
  Transmission Date: 20250717
  Serious: Yes (Other)
  Sender: TAKEDA
  Company Number: CA-TAKEDA-2022TUS037270

PATIENT
  Sex: Male

DRUGS (2)
  1. VEDOLIZUMAB [Suspect]
     Active Substance: VEDOLIZUMAB
     Indication: Crohn^s disease
  2. VEDOLIZUMAB [Suspect]
     Active Substance: VEDOLIZUMAB
     Indication: Crohn^s disease
     Dosage: 108 MILLIGRAM, Q2WEEKS
     Dates: start: 20220910

REACTIONS (12)
  - Intestinal stenosis [Unknown]
  - Crohn^s disease [Unknown]
  - Osteoporosis [Not Recovered/Not Resolved]
  - Haemorrhoidal haemorrhage [Unknown]
  - Hernia [Unknown]
  - Gallbladder disorder [Unknown]
  - Spinal deformity [Unknown]
  - Gastrooesophageal reflux disease [Unknown]
  - Intestinal mass [Unknown]
  - Abdominal pain [Not Recovered/Not Resolved]
  - Anal fissure [Unknown]
  - Eczema [Not Recovered/Not Resolved]
